FAERS Safety Report 10343148 (Version 2)
Quarter: 2014Q3

REPORT INFORMATION
  Report Type: Spontaneous
  Country: US (occurrence: US)
  Receive Date: 20140725
  Receipt Date: 20140827
  Transmission Date: 20150326
  Serious: Yes (Other)
  Sender: FDA-Public Use
  Company Number: US-JNJFOC-20140713277

PATIENT
  Sex: Female

DRUGS (2)
  1. NUCYNTA [Suspect]
     Active Substance: TAPENTADOL HYDROCHLORIDE
     Indication: KNEE ARTHROPLASTY
     Dosage: HALF TABLET EVERY THREE-FOUR HOURDS
     Route: 048
  2. NUCYNTA [Suspect]
     Active Substance: TAPENTADOL HYDROCHLORIDE
     Indication: KNEE ARTHROPLASTY
     Route: 048
     Dates: start: 201310

REACTIONS (6)
  - Wrong technique in drug usage process [Recovered/Resolved]
  - Exostosis [Unknown]
  - Drug ineffective [Recovered/Resolved]
  - Rotator cuff syndrome [Unknown]
  - Drug prescribing error [Unknown]
  - Dependence [Unknown]

NARRATIVE: CASE EVENT DATE: 201407
